FAERS Safety Report 4386137-4 (Version None)
Quarter: 2004Q2

REPORT INFORMATION
  Report Type: 
  Country: None (occurrence: None)
  Receive Date: 20040625
  Receipt Date: 20040625
  Transmission Date: 20050107
  Serious: Yes (Hospitalization)
  Sender: FDA-Public Use
  Company Number: None

PATIENT
  Age: 62 Year
  Sex: Male

DRUGS (4)
  1. NIFEDIPINE [Suspect]
     Indication: HYPERTENSION
  2. ATENOLOL [Suspect]
  3. TERAZOSIN 5 MG PO DAILY [Suspect]
  4. LOSARTAN POTASSIUM AND HYDROCHLOROTHIAZIDE [Suspect]

REACTIONS (13)
  - BODY TEMPERATURE INCREASED [None]
  - BRAIN NATRIURETIC PEPTIDE INCREASED [None]
  - BREATH SOUNDS DECREASED [None]
  - DYSPNOEA EXACERBATED [None]
  - HYPOTENSION [None]
  - LUNG CREPITATION [None]
  - LUNG INFILTRATION [None]
  - OXYGEN SATURATION DECREASED [None]
  - PLEURITIC PAIN [None]
  - RENAL FAILURE ACUTE [None]
  - RESPIRATORY DISTRESS [None]
  - RESPIRATORY RATE INCREASED [None]
  - WHITE BLOOD CELL COUNT INCREASED [None]
